FAERS Safety Report 6113202-3 (Version None)
Quarter: 2009Q1

REPORT INFORMATION
  Report Type: 
  Country: None (occurrence: None)
  Receive Date: 20090312
  Receipt Date: 20090305
  Transmission Date: 20090719
  Serious: Yes (Other)
  Sender: FDA-Public Use
  Company Number: US-ABBOTT-09P-163-0501834-00

PATIENT
  Sex: Female
  Weight: 85.806 kg

DRUGS (1)
  1. HUMIRA [Suspect]
     Indication: RHEUMATOID ARTHRITIS
     Dates: start: 20050101, end: 20081101

REACTIONS (10)
  - ALOPECIA [None]
  - AORTIC EMBOLUS [None]
  - BREAST CANCER [None]
  - CATHETER SITE HAEMATOMA [None]
  - CATHETER SITE PAIN [None]
  - CATHETER SITE SWELLING [None]
  - HEADACHE [None]
  - LYMPHOMA [None]
  - NASOPHARYNGITIS [None]
  - SKIN EXFOLIATION [None]
